FAERS Safety Report 15884288 (Version 1)
Quarter: 2019Q1

REPORT INFORMATION
  Report Type: Spontaneous
  Country: US (occurrence: US)
  Receive Date: 20190129
  Receipt Date: 20190129
  Transmission Date: 20190417
  Serious: No
  Sender: FDA-Public Use
  Company Number: US-PFIZER INC-2019041885

PATIENT
  Age: 77 Year
  Sex: Female

DRUGS (12)
  1. FLUCONAZOLE. [Suspect]
     Active Substance: FLUCONAZOLE
     Dosage: UNK
  2. NAPROXEN SODIUM. [Suspect]
     Active Substance: NAPROXEN SODIUM
     Dosage: UNK
  3. ALLOPURINOL. [Suspect]
     Active Substance: ALLOPURINOL
     Dosage: UNK
  4. ENALAPRIL MALEATE. [Suspect]
     Active Substance: ENALAPRIL MALEATE
     Dosage: UNK
  5. INDOCIN [Suspect]
     Active Substance: INDOMETHACIN
     Dosage: UNK
  6. BUPROPION. [Suspect]
     Active Substance: BUPROPION
     Dosage: UNK
  7. VASOTEC [Suspect]
     Active Substance: ENALAPRIL MALEATE
     Dosage: UNK
  8. ENALAPRILAT. [Suspect]
     Active Substance: ENALAPRILAT
     Dosage: UNK
  9. HYDRALAZINE [Suspect]
     Active Substance: HYDRALAZINE HYDROCHLORIDE
     Dosage: UNK
  10. COLCHICINE. [Suspect]
     Active Substance: COLCHICINE
     Dosage: UNK
  11. ULORIC [Suspect]
     Active Substance: FEBUXOSTAT
     Dosage: UNK
  12. ROPINIROLE. [Suspect]
     Active Substance: ROPINIROLE
     Dosage: UNK

REACTIONS (1)
  - Drug hypersensitivity [Unknown]
